FAERS Safety Report 23611198 (Version 1)
Quarter: 2024Q1

REPORT INFORMATION
  Report Type: Spontaneous
  Country: US (occurrence: None)
  Receive Date: 20240308
  Receipt Date: 20240308
  Transmission Date: 20240409
  Serious: Yes (Hospitalization)
  Sender: FDA-Public Use
  Company Number: None

PATIENT
  Age: 62 Year
  Sex: Male

DRUGS (1)
  1. SCEMBLIX [Suspect]
     Active Substance: ASCIMINIB HYDROCHLORIDE
     Indication: Chronic myeloid leukaemia
     Dosage: 40MG TWICE A DAY ORAL
     Route: 048
     Dates: start: 202402

REACTIONS (2)
  - Palpitations [None]
  - Catheterisation cardiac [None]

NARRATIVE: CASE EVENT DATE: 20240304
